FAERS Safety Report 8908408 (Version 1)
Quarter: 2012Q4

REPORT INFORMATION
  Report Type: 
  Country: DK (occurrence: DK)
  Receive Date: 20121114
  Receipt Date: 20121114
  Transmission Date: 20130627
  Serious: Yes (Other)
  Sender: FDA-Public Use
  Company Number: PHHY2012DK104065

PATIENT
  Age: 49 Year
  Sex: Female
  Weight: 93 kg

DRUGS (15)
  1. MYFORTIC [Suspect]
     Indication: PROPHYLAXIS AGAINST TRANSPLANT REJECTION
     Dosage: STYRKE: 360 mg
     Route: 048
     Dates: start: 20120928, end: 20121002
  2. CALCIUM CARBONATE [Concomitant]
     Indication: HYPERPHOSPHATAEMIA
  3. SIMVASTATIN [Concomitant]
     Indication: HYPERCHOLESTEROLAEMIA
  4. MAREVAN [Concomitant]
     Indication: THROMBOSIS PROPHYLAXIS
  5. DIAMICRON [Concomitant]
     Indication: DIABETES MELLITUS
  6. PANTOPRAZOL [Concomitant]
     Indication: DYSPEPSIA
  7. ALLOPURINOL ^DAK^ [Concomitant]
     Indication: GOUTY ARTHRITIS
  8. ETALPHA [Concomitant]
     Indication: HYPERPARATHYROIDISM SECONDARY
  9. PREDNISOLON [Concomitant]
     Indication: PALINDROMIC RHEUMATISM
  10. FOLININE [Concomitant]
     Indication: VITAMIN SUPPLEMENTATION
  11. ARANESP [Concomitant]
     Indication: NEPHROGENIC ANAEMIA
  12. INNOHEP [Concomitant]
     Indication: THROMBOSIS PROPHYLAXIS
  13. MIDODRINE [Concomitant]
     Indication: HYPOTENSION
  14. VITAMIN C [Concomitant]
  15. VITAMIN B [Concomitant]

REACTIONS (8)
  - C-reactive protein increased [Unknown]
  - White blood cell count increased [Unknown]
  - Odynophagia [Recovered/Resolved]
  - Arthralgia [Recovered/Resolved]
  - Myalgia [Recovered/Resolved]
  - Pyrexia [Recovered/Resolved]
  - Nausea [Recovered/Resolved]
  - Diarrhoea [Recovered/Resolved]
